FAERS Safety Report 8825324 (Version 2)
Quarter: 2014Q3

REPORT INFORMATION
  Report Type: Spontaneous
  Country: US (occurrence: US)
  Receive Date: 20121004
  Receipt Date: 20140718
  Transmission Date: 20150326
  Serious: Yes (Hospitalization, Disabling, Other)
  Sender: FDA-Public Use
  Company Number: US-009507513-2010SP004876

PATIENT
  Sex: Female
  Weight: 94.35 kg

DRUGS (3)
  1. NUVARING [Suspect]
     Active Substance: ETHINYL ESTRADIOL\ETONOGESTREL
     Dates: start: 200805, end: 200808
  2. NUVARING [Suspect]
     Active Substance: ETHINYL ESTRADIOL\ETONOGESTREL
     Indication: CONTRACEPTION
     Dates: start: 2003, end: 2005
  3. NUVARING [Suspect]
     Active Substance: ETHINYL ESTRADIOL\ETONOGESTREL
     Dates: start: 2003, end: 2005

REACTIONS (16)
  - Pulmonary embolism [Recovered/Resolved]
  - Flank pain [Unknown]
  - Migraine [Not Recovered/Not Resolved]
  - Hypertension [Unknown]
  - Hydronephrosis [Unknown]
  - Pleurisy [Unknown]
  - Peripheral swelling [Unknown]
  - Tendonitis [Unknown]
  - Herpes simplex [Unknown]
  - Deep vein thrombosis [Recovered/Resolved]
  - Chest pain [Unknown]
  - Psoriasis [Unknown]
  - Hypercoagulation [Unknown]
  - Stent placement [Unknown]
  - Diarrhoea [Recovered/Resolved]
  - Arthralgia [Unknown]

NARRATIVE: CASE EVENT DATE: 20051104
